FAERS Safety Report 8533201-1 (Version None)
Quarter: 2012Q3

REPORT INFORMATION
  Report Type: 
  Country: None (occurrence: None)
  Receive Date: 20120724
  Receipt Date: 20120717
  Transmission Date: 20120928
  Serious: Yes (Life-Threatening, Other)
  Sender: FDA-Public Use
  Company Number: BR-SANOFI-AVENTIS-2012SA005460

PATIENT
  Age: 38 Year
  Sex: Female
  Weight: 87 kg

DRUGS (2)
  1. ENOXAPARIN SODIUM [Suspect]
     Dosage: 40 MG
     Route: 058
     Dates: start: 20120122, end: 20120203
  2. SYNTHROID [Concomitant]
     Indication: HYPOTHYROIDISM
     Dosage: 175MCG
     Route: 048
     Dates: start: 19880101

REACTIONS (4)
  - PRE-ECLAMPSIA [None]
  - MATERNAL EXPOSURE DURING PREGNANCY [None]
  - PROTEINURIA [None]
  - STILLBIRTH [None]
